FAERS Safety Report 4978215-3 (Version None)
Quarter: 2006Q2

REPORT INFORMATION
  Report Type: 
  Country: None (occurrence: None)
  Receive Date: 20060417
  Receipt Date: 20060403
  Transmission Date: 20061013
  Serious: Yes (Hospitalization)
  Sender: FDA-Public Use
  Company Number: 8012888

PATIENT
  Age: 14 Year
  Sex: Female

DRUGS (3)
  1. KEPPRA [Suspect]
     Indication: CONVULSION
     Dosage: 300 MG 3/D PO
     Route: 048
  2. KEPPRA [Suspect]
     Indication: CONVULSION
  3. PMS [Concomitant]

REACTIONS (3)
  - CONVULSION [None]
  - ERYTHEMA MULTIFORME [None]
  - SKIN HYPERPIGMENTATION [None]
